FAERS Safety Report 10618804 (Version 1)
Quarter: 2014Q4

REPORT INFORMATION
  Report Type: Spontaneous
  Country: FR (occurrence: FR)
  Receive Date: 20141202
  Receipt Date: 20141202
  Transmission Date: 20150529
  Serious: Yes (Hospitalization, Other)
  Sender: FDA-Public Use
  Company Number: FR-BAYER-2014-172817

PATIENT
  Age: 52 Year
  Sex: Male

DRUGS (1)
  1. BETAFERON [Suspect]
     Active Substance: INTERFERON BETA-1B
     Indication: MULTIPLE SCLEROSIS
     Dosage: UNK

REACTIONS (7)
  - ADAMTS13 activity decreased [None]
  - Thrombotic microangiopathy [None]
  - Renal failure [Recovered/Resolved with Sequelae]
  - Haemolytic anaemia [Recovered/Resolved]
  - Raynaud^s phenomenon [None]
  - Shock haemorrhagic [None]
  - Retinal haemorrhage [None]
